FAERS Safety Report 11400213 (Version 1)
Quarter: 2015Q3

REPORT INFORMATION
  Report Type: Spontaneous
  Country: US (occurrence: US)
  Receive Date: 20150820
  Receipt Date: 20150820
  Transmission Date: 20151125
  Serious: No
  Sender: FDA-Public Use
  Company Number: US-HORIZON-PRE-0125-2015

PATIENT
  Age: 75 Year
  Sex: Male

DRUGS (9)
  1. RAYOS [Suspect]
     Active Substance: PREDNISONE
     Indication: FIBROMYALGIA
     Dates: start: 20150811
  2. FOLIC ACID. [Concomitant]
     Active Substance: FOLIC ACID
  3. TAMSULOSIN [Concomitant]
     Active Substance: TAMSULOSIN
  4. MULTIVITAMIN [Concomitant]
     Active Substance: VITAMINS
  5. ZANTAC [Concomitant]
     Active Substance: RANITIDINE HYDROCHLORIDE
  6. METHOTREXATE [Concomitant]
     Active Substance: METHOTREXATE
  7. CALCIUM [Concomitant]
     Active Substance: CALCIUM
  8. BISOPROLOL [Concomitant]
     Active Substance: BISOPROLOL
  9. SIMVASTATIN. [Concomitant]
     Active Substance: SIMVASTATIN

REACTIONS (2)
  - Off label use [Unknown]
  - Dyspepsia [Not Recovered/Not Resolved]

NARRATIVE: CASE EVENT DATE: 20150812
